FAERS Safety Report 15087792 (Version 1)
Quarter: 2018Q2

REPORT INFORMATION
  Report Type: Spontaneous
  Country: FR (occurrence: FR)
  Receive Date: 20180629
  Receipt Date: 20180629
  Transmission Date: 20180711
  Serious: Yes (Hospitalization)
  Sender: FDA-Public Use
  Company Number: FR-TEVA-2018-FR-916345

PATIENT
  Age: 69 Year
  Sex: Male
  Weight: 83 kg

DRUGS (18)
  1. OXALIPLATINE [Suspect]
     Active Substance: OXALIPLATIN
     Indication: ADENOCARCINOMA PANCREAS
     Dosage: 160 MILLIGRAM DAILY;
     Dates: start: 20180507, end: 20180507
  2. OXALIPLATINE [Suspect]
     Active Substance: OXALIPLATIN
     Dosage: 160 MILLIGRAM DAILY;
     Route: 042
     Dates: start: 20180507, end: 20180507
  3. ZOPHREN 8 MG/4 ML, SOLUTION INJECTABLE EN SERINGUE PR?-REMPLIE [Concomitant]
     Indication: PROPHYLAXIS OF NAUSEA AND VOMITING
     Dosage: 1 DOSAGE FORMS DAILY;
     Route: 042
  4. ASMELOR NOVOLIZER [Concomitant]
     Indication: CHRONIC OBSTRUCTIVE PULMONARY DISEASE
     Dosage: 2 DOSAGE FORMS DAILY;
     Route: 055
  5. TRANDATE 200 MG, COMPRIM? PELLICUL? [Concomitant]
     Indication: HYPERTENSION
     Dosage: 600 MILLIGRAM DAILY;
     Route: 048
  6. EMEND 125 MG, G?LULE [Concomitant]
     Indication: PROPHYLAXIS OF NAUSEA AND VOMITING
     Dosage: 125 MILLIGRAM DAILY;
     Route: 048
  7. METFORMINE [Concomitant]
     Active Substance: METFORMIN HYDROCHLORIDE
     Indication: TYPE 2 DIABETES MELLITUS
     Dosage: 1500 MILLIGRAM DAILY;
     Route: 048
  8. MONO TILDIEM LP 300 MG, G?LULE ? LIB?RATION PROLONG?E [Concomitant]
     Indication: HYPERTENSION
     Dosage: 300 MILLIGRAM DAILY; EXTENDED RELEASE CAPSULE
     Route: 048
  9. FLUOROURACILE [Suspect]
     Active Substance: FLUOROURACIL
     Dosage: 160 MILLIGRAM DAILY;
     Route: 042
     Dates: start: 20180507, end: 20180507
  10. IRINOTECAN [Suspect]
     Active Substance: IRINOTECAN
     Indication: ADENOCARCINOMA PANCREAS
     Dosage: 340 MILLIGRAM DAILY;
     Dates: start: 20180507, end: 20180507
  11. SOLU-MEDROL [Concomitant]
     Active Substance: METHYLPREDNISOLONE SODIUM SUCCINATE
     Indication: PROPHYLAXIS OF NAUSEA AND VOMITING
     Dosage: 60 MILLIGRAM DAILY;
     Route: 048
  12. NASONEX 50 MICROGRAMMES/DOSE, SUSPENSION POUR PULV?RISATION NASALE [Concomitant]
     Indication: CHRONIC OBSTRUCTIVE PULMONARY DISEASE
     Dosage: 1 DOSAGE FORMS DAILY;  50 MICROGRAMS/DOSE, NASAL SPRAY SUSPENSION
     Route: 045
  13. ELVORINE [Concomitant]
     Active Substance: LEUCOVORIN CALCIUM
     Indication: POTENTIATING DRUG INTERACTION
     Dosage: 1 DOSAGE FORMS DAILY;
     Route: 042
  14. FLUOROURACILE [Suspect]
     Active Substance: FLUOROURACIL
     Indication: ADENOCARCINOMA PANCREAS
     Dosage: 4600 MILLIGRAM DAILY;
     Route: 042
     Dates: start: 20180507, end: 20180507
  15. TAREG [Concomitant]
     Active Substance: VALSARTAN
     Indication: HYPERTENSION
     Dosage: 80 MILLIGRAM DAILY;
     Route: 048
  16. NOVOPULMON NOVOLIZER [Concomitant]
     Active Substance: BUDESONIDE
     Indication: CHRONIC OBSTRUCTIVE PULMONARY DISEASE
     Dosage: 1 DOSAGE FORMS DAILY;
     Route: 055
  17. IRINOTECAN [Suspect]
     Active Substance: IRINOTECAN
     Dosage: 160 MILLIGRAM DAILY;
     Route: 042
     Dates: start: 20180507, end: 20180507
  18. TAHOR [Concomitant]
     Active Substance: ATORVASTATIN CALCIUM
     Indication: DYSLIPIDAEMIA
     Dosage: 20 MILLIGRAM DAILY;
     Route: 048

REACTIONS (1)
  - Ischaemic stroke [Not Recovered/Not Resolved]

NARRATIVE: CASE EVENT DATE: 20180508
